FAERS Safety Report 12308853 (Version 1)
Quarter: 2016Q2

REPORT INFORMATION
  Report Type: Spontaneous
  Country: US (occurrence: US)
  Receive Date: 20160427
  Receipt Date: 20160427
  Transmission Date: 20160815
  Serious: No
  Sender: FDA-Public Use
  Company Number: US-GLENMARK PHARMACEUTICALS INC, USA.-2015GMK020994

PATIENT

DRUGS (2)
  1. MULTI VITAMIN [Concomitant]
     Active Substance: VITAMINS
     Indication: ROUTINE HEALTH MAINTENANCE
     Dosage: UNK, OD, 30 YEARS
     Route: 048
  2. IMIQUIMOD. [Suspect]
     Active Substance: IMIQUIMOD
     Indication: BASAL CELL CARCINOMA
     Dosage: ONE TIME A DAY, 5 TIMES A WEEK, ON THE TIP OF HIS NOSE BEFORE BED AND WASHING IT OFF IN THE MORNING
     Route: 061
     Dates: start: 21051123

REACTIONS (1)
  - Off label use [Unknown]
